FAERS Safety Report 18707400 (Version 1)
Quarter: 2021Q1

REPORT INFORMATION
  Report Type: Spontaneous
  Country: US (occurrence: US)
  Receive Date: 20210106
  Receipt Date: 20210106
  Transmission Date: 20210419
  Serious: Yes (Hospitalization)
  Sender: FDA-Public Use
  Company Number: None

PATIENT
  Age: 82 Year
  Sex: Male
  Weight: 105.3 kg

DRUGS (15)
  1. ABIRATERONE. [Suspect]
     Active Substance: ABIRATERONE ACETATE
     Indication: PROSTATE CANCER
     Dates: start: 20181204
  2. PREDNISONE. [Concomitant]
     Active Substance: PREDNISONE
  3. FENOFIBRATE. [Concomitant]
     Active Substance: FENOFIBRATE
  4. OXYCODONE [Concomitant]
     Active Substance: OXYCODONE
  5. NOVOLOG [Concomitant]
     Active Substance: INSULIN ASPART
  6. BICALUTAMIDE. [Concomitant]
     Active Substance: BICALUTAMIDE
  7. ENALAPRIL [Concomitant]
     Active Substance: ENALAPRIL
  8. CARTIA XT [Concomitant]
     Active Substance: DILTIAZEM HYDROCHLORIDE
  9. LANTUS [Concomitant]
     Active Substance: INSULIN GLARGINE
  10. CALCIUM + VITAMIN D3 [Concomitant]
     Active Substance: CALCIUM\CHOLECALCIFEROL
  11. FUROSEMIDE. [Concomitant]
     Active Substance: FUROSEMIDE
  12. CRESTOR [Concomitant]
     Active Substance: ROSUVASTATIN CALCIUM
  13. FAMOTIDINE. [Concomitant]
     Active Substance: FAMOTIDINE
  14. TORSEMIDE. [Concomitant]
     Active Substance: TORSEMIDE
  15. WARFARIN [Concomitant]
     Active Substance: WARFARIN

REACTIONS (2)
  - Fall [None]
  - Skin laceration [None]

NARRATIVE: CASE EVENT DATE: 20201223
